FAERS Safety Report 5136837-3 (Version None)
Quarter: 2006Q4

REPORT INFORMATION
  Report Type: 
  Country: None (occurrence: None)
  Receive Date: 20061023
  Receipt Date: 20061013
  Transmission Date: 20070319
  Serious: Yes (Hospitalization)
  Sender: FDA-Public Use
  Company Number: NLWYE986621SEP06

PATIENT
  Sex: Male

DRUGS (1)
  1. EFFEXOR XR [Suspect]
     Indication: DEPRESSION
     Dosage: BETWEEN 75MG AND 150MG DAILY ORAL
     Route: 048
     Dates: start: 20060101, end: 20060101

REACTIONS (5)
  - CONDITION AGGRAVATED [None]
  - HEART RATE INCREASED [None]
  - HYPERTENSION [None]
  - HYPERTONIA [None]
  - TRANSIENT ISCHAEMIC ATTACK [None]
